FAERS Safety Report 8859488 (Version 2)
Quarter: 2012Q4

REPORT INFORMATION
  Report Type: 
  Country: IT (occurrence: IT)
  Receive Date: 20121024
  Receipt Date: 20121107
  Transmission Date: 20130627
  Serious: Yes (Other)
  Sender: FDA-Public Use
  Company Number: PHHY2012IT095140

PATIENT
  Age: 24 Year
  Sex: Male

DRUGS (1)
  1. EXTAVIA [Suspect]
     Dates: start: 200901, end: 201104

REACTIONS (1)
  - Multiple sclerosis relapse [Unknown]
